FAERS Safety Report 15743740 (Version 2)
Quarter: 2019Q1

REPORT INFORMATION
  Report Type: Spontaneous
  Country: BR (occurrence: BR)
  Receive Date: 20181220
  Receipt Date: 20190122
  Transmission Date: 20190417
  Serious: Yes (Hospitalization, Other)
  Sender: FDA-Public Use
  Company Number: BR-ASTRAZENECA-2018SF66668

PATIENT
  Sex: Male

DRUGS (1)
  1. XIGDUO XR [Suspect]
     Active Substance: DAPAGLIFLOZIN PROPANEDIOL\METFORMIN HYDROCHLORIDE
     Route: 048
     Dates: end: 201808

REACTIONS (2)
  - Urinary tract infection [Recovered/Resolved]
  - Systemic infection [Recovered/Resolved]

NARRATIVE: CASE EVENT DATE: 201808
